FAERS Safety Report 12207765 (Version 1)
Quarter: 2016Q1

REPORT INFORMATION
  Report Type: Spontaneous
  Country: DE (occurrence: DE)
  Receive Date: 20160324
  Receipt Date: 20160324
  Transmission Date: 20160526
  Serious: Yes (Death)
  Sender: FDA-Public Use
  Company Number: DE-EAGLE PHARMACEUTICALS, INC.-DE-2016EAG000015

PATIENT

DRUGS (4)
  1. BENDAMUSTINE HYDROCLHORIDE [Suspect]
     Active Substance: BENDAMUSTINE HYDROCHLORIDE
     Indication: PRODUCT USED FOR UNKNOWN INDICATION
     Dosage: UNK DF,  GREATER THAN OR EQUAL TO 30 MINUTES AFTER GAZYVARO ON D1 AND D2 OF EACH CYCLE
     Route: 042
  2. GAZYVARO [Suspect]
     Active Substance: OBINUTUZUMAB
     Indication: PRODUCT USED FOR UNKNOWN INDICATION
     Dosage: 25 MG, DAY 1 OF C1
     Route: 042
  3. GAZYVARO [Suspect]
     Active Substance: OBINUTUZUMAB
     Dosage: 975 MG, DAY 2 OF C1
     Route: 042
  4. GAZYVARO [Suspect]
     Active Substance: OBINUTUZUMAB
     Dosage: 1000 MG, D8, D15, OF C1 AND D1 C2-6
     Route: 042

REACTIONS (1)
  - Sudden death [Fatal]
